FAERS Safety Report 6621889-1 (Version None)
Quarter: 2010Q1

REPORT INFORMATION
  Report Type: 
  Country: None (occurrence: None)
  Receive Date: 20100304
  Receipt Date: 20100216
  Transmission Date: 20100710
  Serious: Yes (Other)
  Sender: FDA-Public Use
  Company Number: SPV1-2010-00311

PATIENT
  Age: 9 Year
  Sex: Male

DRUGS (2)
  1. ELAPRASE [Suspect]
     Indication: MUCOPOLYSACCHARIDOSIS II
     Dosage: 0.5 MG/KG, IV DRIP
     Route: 041
     Dates: start: 20100209
  2. PHENYTOIN [Concomitant]

REACTIONS (1)
  - GRAND MAL CONVULSION [None]
